FAERS Safety Report 7584646-8 (Version None)
Quarter: 2011Q2

REPORT INFORMATION
  Report Type: 
  Country: None (occurrence: None)
  Receive Date: 20110630
  Receipt Date: 20110627
  Transmission Date: 20111010
  Serious: Yes (Other)
  Sender: FDA-Public Use
  Company Number: FR-ROCHE-754506

PATIENT
  Sex: Female
  Weight: 63 kg

DRUGS (11)
  1. ESOMEPRAZOLE MAGNESIUM [Concomitant]
     Dates: start: 20080101
  2. TOCILIZUMAB [Suspect]
     Route: 042
     Dates: start: 20100626
  3. METHOTREXATE [Suspect]
     Route: 065
     Dates: start: 19990101
  4. TRAMADOL HCL [Concomitant]
     Dates: start: 20080701
  5. KETOPROFEN [Concomitant]
     Dates: start: 19990101
  6. GOLD SALTS NOS [Concomitant]
     Route: 065
     Dates: start: 19940101
  7. TOCILIZUMAB [Suspect]
     Indication: RHEUMATOID ARTHRITIS
     Route: 042
     Dates: start: 20100127, end: 20100225
  8. ACETAMINOPHEN [Suspect]
     Route: 065
     Dates: start: 20080701
  9. SOTALOL HCL [Concomitant]
     Dates: start: 20070101
  10. PREDNISONE [Suspect]
     Route: 065
     Dates: start: 19950101
  11. BROMAZEPAM [Concomitant]
     Dates: start: 20060101

REACTIONS (1)
  - ANAL CANCER [None]
